FAERS Safety Report 6219209-X (Version None)
Quarter: 2009Q2

REPORT INFORMATION
  Report Type: 
  Country: None (occurrence: None)
  Receive Date: 20090605
  Receipt Date: 20090605
  Transmission Date: 20091009
  Serious: Yes (Disabling)
  Sender: FDA-Public Use
  Company Number: None

PATIENT
  Age: 77 Year
  Sex: Male
  Weight: 79.8331 kg

DRUGS (2)
  1. LEVAQUIN [Suspect]
     Indication: COUGH
     Dosage: SEVEN-7- TABLETS ONE A DAY PO
     Route: 048
     Dates: start: 20090306, end: 20090313
  2. LEVAQUIN [Suspect]
     Indication: NASOPHARYNGITIS
     Dosage: SEVEN-7- TABLETS ONE A DAY PO
     Route: 048
     Dates: start: 20090306, end: 20090313

REACTIONS (1)
  - TENDON RUPTURE [None]
